FAERS Safety Report 16743626 (Version 3)
Quarter: 2019Q4

REPORT INFORMATION
  Report Type: Report from Study
  Country: BR (occurrence: BR)
  Receive Date: 20190827
  Receipt Date: 20191007
  Transmission Date: 20200122
  Serious: Yes (Hospitalization, Other)
  Sender: FDA-Public Use
  Company Number: BR-UCBSA-2019035325

PATIENT
  Age: 57 Year
  Sex: Female
  Weight: 108 kg

DRUGS (8)
  1. HYDROCHLOROTHIAZIDE. [Concomitant]
     Active Substance: HYDROCHLOROTHIAZIDE
     Indication: HYPERTENSION
     Dosage: 25 MILLIGRAM, ONCE DAILY (QD)
     Route: 048
  2. PREDNISOLON [PREDNISOLONE SODIUM PHOSPHATE] [Concomitant]
     Indication: HYPERSENSITIVITY
     Dosage: 20 MILLIGRAM, 2X/DAY (BID)
     Route: 048
     Dates: start: 20190715
  3. ALENIA [BUDESONIDE;FORMOTEROL FUMARATE] [Concomitant]
     Active Substance: BUDESONIDE\FORMOTEROL FUMARATE
     Indication: DYSPNOEA
     Dosage: 400 MILLIGRAM, 2X/DAY (BID)
  4. LEVOTIROXINA [LEVOTHYROXINE] [Concomitant]
     Indication: THYROID DISORDER
     Dosage: 100 MILLIGRAM, ONCE DAILY (QD)
     Route: 048
  5. AEROFRIN [Concomitant]
     Indication: MUSCLE SPASMS
     Dosage: 100 MILLIGRAM, 2X/DAY (BID)
     Route: 045
  6. NEOMICINA [NEOMYCIN SULFATE] [Concomitant]
     Indication: ANTIBIOTIC THERAPY
     Dosage: UNK
     Route: 061
     Dates: start: 20190730
  7. LOSARTAN. [Concomitant]
     Active Substance: LOSARTAN
     Indication: HYPERTENSION
     Dosage: 50 MILLIGRAM, ONCE DAILY (QD)
     Route: 048
  8. CIMZIA [Suspect]
     Active Substance: CERTOLIZUMAB PEGOL
     Indication: RHEUMATOID ARTHRITIS
     Dosage: 200 MILLIGRAM, EV 2 WEEKS(QOW)
     Route: 058
     Dates: start: 201904

REACTIONS (6)
  - Asthma [Recovering/Resolving]
  - Skin laceration [Recovering/Resolving]
  - Pain in extremity [Recovering/Resolving]
  - Pneumonia [Recovering/Resolving]
  - Urinary tract infection [Not Recovered/Not Resolved]
  - Arthralgia [Recovering/Resolving]

NARRATIVE: CASE EVENT DATE: 20190703
